FAERS Safety Report 22830023 (Version 2)
Quarter: 2024Q1

REPORT INFORMATION
  Report Type: Spontaneous
  Country: US (occurrence: US)
  Receive Date: 20230816
  Receipt Date: 20240219
  Transmission Date: 20240410
  Serious: No
  Sender: FDA-Public Use
  Company Number: US-AURINIA PHARMACEUTICALS INC.-AUR-003746

PATIENT
  Age: 20 Year
  Sex: Female

DRUGS (3)
  1. LUPKYNIS [Suspect]
     Active Substance: VOCLOSPORIN
     Indication: Lupus nephritis
     Dosage: 7.9 MILLIGRAM, BID
     Route: 048
  2. LUPKYNIS [Suspect]
     Active Substance: VOCLOSPORIN
     Dosage: 7.9 MILLIGRAM, BID
     Route: 048
     Dates: start: 20230601
  3. LUPKYNIS [Suspect]
     Active Substance: VOCLOSPORIN
     Dosage: UNK
     Route: 048

REACTIONS (4)
  - Migraine [Unknown]
  - Diarrhoea [Unknown]
  - Rash [Recovered/Resolved]
  - Acne [Recovered/Resolved]

NARRATIVE: CASE EVENT DATE: 20230528
